FAERS Safety Report 25436078 (Version 1)
Quarter: 2025Q2

REPORT INFORMATION
  Report Type: Spontaneous
  Country: AU (occurrence: AU)
  Receive Date: 20250614
  Receipt Date: 20250614
  Transmission Date: 20250716
  Serious: Yes (Hospitalization, Other)
  Sender: BRISTOL-MYERS SQUIBB COMPANY
  Company Number: AU-BRISTOL-MYERS SQUIBB COMPANY-2025-083063

PATIENT
  Age: 74 Year
  Sex: Male

DRUGS (15)
  1. APIXABAN [Suspect]
     Active Substance: APIXABAN
     Indication: Prophylaxis
     Route: 048
     Dates: start: 20241001
  2. APIXABAN [Suspect]
     Active Substance: APIXABAN
     Route: 048
     Dates: end: 20250325
  3. PATRITUMAB DERUXTECAN [Suspect]
     Active Substance: PATRITUMAB DERUXTECAN
     Indication: Cholangiocarcinoma
     Dosage: DOSE: 5.6 MILLIGRAM PER KILOGRAM; DOSE FORM: INJECTION; INTERVAL: 3 WEEK; ROUTE OF ?ADMINISTRATION:
     Route: 042
     Dates: start: 20250402, end: 20250402
  4. PATRITUMAB DERUXTECAN [Suspect]
     Active Substance: PATRITUMAB DERUXTECAN
     Indication: Bile duct adenocarcinoma
     Dosage: DOSE: 5.6 MILLIGRAM PER KILOGRAM; DOSE FORM: INJECTION; INTERVAL: 3 WEEK; ROUTE OF ?ADMINISTRATION:
     Route: 042
     Dates: start: 20250312, end: 20250312
  5. NOVORAPID [Concomitant]
     Active Substance: INSULIN ASPART
     Indication: Type 2 diabetes mellitus
     Route: 058
     Dates: start: 201301
  6. LANTUS [Concomitant]
     Active Substance: INSULIN GLARGINE
     Indication: Type 2 diabetes mellitus
     Route: 058
     Dates: start: 201301
  7. ISOSORBIDE MONONITRATE [Concomitant]
     Active Substance: ISOSORBIDE MONONITRATE
     Indication: Prophylaxis
     Route: 048
     Dates: start: 201301
  8. METFORMIN HYDROCHLORIDE\SAXAGLIPTIN [Concomitant]
     Active Substance: METFORMIN HYDROCHLORIDE\SAXAGLIPTIN
     Indication: Type 2 diabetes mellitus
     Route: 048
  9. ASPIRIN [Concomitant]
     Active Substance: ASPIRIN
     Indication: Prophylaxis
     Route: 048
     Dates: start: 201301
  10. EZETIMIBE [Concomitant]
     Active Substance: EZETIMIBE
     Indication: Hypercholesterolaemia
     Route: 048
     Dates: start: 20241101
  11. ATORVASTATIN CALCIUM [Concomitant]
     Active Substance: ATORVASTATIN CALCIUM
     Indication: Hypercholesterolaemia
     Route: 048
     Dates: start: 20241101
  12. TEMAZEPAM [Concomitant]
     Active Substance: TEMAZEPAM
     Indication: Insomnia
     Route: 048
     Dates: start: 202501
  13. VELTASSA [Concomitant]
     Active Substance: PATIROMER
     Indication: Hyperkalaemia
     Route: 048
     Dates: start: 20250211, end: 20250315
  14. MAGNESIUM OXIDE [Concomitant]
     Active Substance: MAGNESIUM OXIDE
     Indication: Prophylaxis
     Route: 048
     Dates: start: 20250101
  15. AMYLMETACRESOL\DICHLOROBENZYL ALCOHOL [Concomitant]
     Active Substance: AMYLMETACRESOL\DICHLOROBENZYL ALCOHOL
     Indication: Oropharyngeal pain
     Route: 048
     Dates: start: 20250313, end: 20250313

REACTIONS (4)
  - Rectal haemorrhage [Recovering/Resolving]
  - Thrombocytopenia [Not Recovered/Not Resolved]
  - Neutropenia [Not Recovered/Not Resolved]
  - Off label use [Unknown]

NARRATIVE: CASE EVENT DATE: 20241001
